FAERS Safety Report 6811151-6 (Version None)
Quarter: 2010Q2

REPORT INFORMATION
  Report Type: 
  Country: None (occurrence: None)
  Receive Date: 20100630
  Receipt Date: 20100628
  Transmission Date: 20101027
  Serious: Yes (Other)
  Sender: FDA-Public Use
  Company Number: US-GILEAD-2010-0029904

PATIENT
  Sex: Male

DRUGS (7)
  1. LETAIRIS [Suspect]
     Indication: PULMONARY ARTERIAL HYPERTENSION
     Route: 048
     Dates: start: 20100112
  2. COUMADIN [Concomitant]
  3. ALENDRONATE [Concomitant]
  4. LASIX [Concomitant]
  5. TENORMIN [Concomitant]
  6. SYNTHROID [Concomitant]
  7. OXYGEN [Concomitant]

REACTIONS (1)
  - PANCYTOPENIA [None]
